FAERS Safety Report 21176450 (Version 1)
Quarter: 2022Q3

REPORT INFORMATION
  Report Type: Spontaneous
  Country: CA (occurrence: CA)
  Receive Date: 20220805
  Receipt Date: 20220805
  Transmission Date: 20221027
  Serious: Yes (Hospitalization, Other)
  Sender: FDA-Public Use
  Company Number: CA-BAYER-2022A105653

PATIENT
  Age: 60 Year
  Sex: Female

DRUGS (2)
  1. CIPRO [Suspect]
     Active Substance: CIPROFLOXACIN HYDROCHLORIDE
     Indication: Urinary tract infection
     Route: 048
  2. TIZANIDINE [Suspect]
     Active Substance: TIZANIDINE
     Indication: Multiple sclerosis
     Dosage: 3 EVERY 1 DAYS
     Route: 048

REACTIONS (8)
  - Somnolence [None]
  - Hypotension [None]
  - Asthenia [None]
  - Fatigue [None]
  - Fluid replacement [None]
  - Drug interaction [None]
  - Sedation [None]
  - Drug level increased [None]
